FAERS Safety Report 7455336-7 (Version None)
Quarter: 2011Q2

REPORT INFORMATION
  Report Type: 
  Country: None (occurrence: None)
  Receive Date: 20110503
  Receipt Date: 20110426
  Transmission Date: 20111010
  Serious: Yes (Hospitalization)
  Sender: FDA-Public Use
  Company Number: US-B.I. PHARMACEUTICALS,INC./RIDGEFIELD-2011-BP-11832BP

PATIENT
  Sex: Female

DRUGS (2)
  1. DIGOXIN [Suspect]
  2. PRADAXA [Suspect]
     Dates: start: 20110407

REACTIONS (2)
  - TOXICITY TO VARIOUS AGENTS [None]
  - WEIGHT DECREASED [None]
